FAERS Safety Report 15859094 (Version 1)
Quarter: 2019Q1

REPORT INFORMATION
  Report Type: Spontaneous
  Country: JP (occurrence: JP)
  Receive Date: 20190123
  Receipt Date: 20190123
  Transmission Date: 20190417
  Serious: Yes (Hospitalization, Other)
  Sender: FDA-Public Use
  Company Number: JP-BRISTOL-MYERS SQUIBB COMPANY-BMS-2019-006064

PATIENT

DRUGS (2)
  1. OXYCODONE [Suspect]
     Active Substance: OXYCODONE
     Indication: PAIN
     Dosage: 15 MG
     Route: 065
  2. OPDIVO [Suspect]
     Active Substance: NIVOLUMAB
     Indication: PLEURAL MESOTHELIOMA MALIGNANT
     Dosage: UNK
     Route: 041

REACTIONS (1)
  - Delirium [Not Recovered/Not Resolved]

NARRATIVE: CASE EVENT DATE: 20190118
